FAERS Safety Report 8578346-5 (Version None)
Quarter: 2012Q3

REPORT INFORMATION
  Report Type: 
  Country: None (occurrence: None)
  Receive Date: 20120808
  Receipt Date: 20120723
  Transmission Date: 20120928
  Serious: No
  Sender: FDA-Public Use
  Company Number: US-BAYER-2012-074509

PATIENT
  Age: 76 Year
  Sex: Female
  Weight: 63.492 kg

DRUGS (5)
  1. PAXIL [Concomitant]
  2. BUPROPION HCL [Concomitant]
  3. ALEVE (CAPLET) [Suspect]
     Indication: ARTHRITIS
     Dosage: 2 DF, PRN
     Route: 048
     Dates: start: 20120718, end: 20120723
  4. DILTIAZEM [Concomitant]
  5. PRESCRIBED SKIN CREAM [Concomitant]

REACTIONS (1)
  - ORAL DISCOMFORT [None]
